FAERS Safety Report 4831955-9 (Version None)
Quarter: 2005Q4

REPORT INFORMATION
  Report Type: 
  Country: None (occurrence: None)
  Receive Date: 20051116
  Receipt Date: 20051102
  Transmission Date: 20060501
  Serious: Yes (Hospitalization)
  Sender: FDA-Public Use
  Company Number: 2005-US-00857

PATIENT
  Age: 72 Year
  Sex: Female

DRUGS (1)
  1. CEFACLOR [Suspect]
     Indication: SKIN ULCER
     Dates: start: 20020108

REACTIONS (6)
  - ACUTE GENERALISED EXANTHEMATOUS PUSTULOSIS [None]
  - CYSTITIS ESCHERICHIA [None]
  - CYSTITIS HAEMORRHAGIC [None]
  - ENTEROBACTER INFECTION [None]
  - LEUKOCYTOSIS [None]
  - STAPHYLOCOCCAL INFECTION [None]
